FAERS Safety Report 8190621-5 (Version None)
Quarter: 2012Q1

REPORT INFORMATION
  Report Type: 
  Country: None (occurrence: None)
  Receive Date: 20120307
  Receipt Date: 20120207
  Transmission Date: 20120608
  Serious: Yes (Other)
  Sender: FDA-Public Use
  Company Number: HU-ROCHE-1038110

PATIENT
  Age: 44 Year
  Sex: Female

DRUGS (1)
  1. PEGASYS [Suspect]
     Indication: MYELOPROLIFERATIVE DISORDER

REACTIONS (2)
  - MATERNAL EXPOSURE DURING PREGNANCY [None]
  - ABORTION SPONTANEOUS [None]
